FAERS Safety Report 6614193-9 (Version None)
Quarter: 2010Q1

REPORT INFORMATION
  Report Type: 
  Country: None (occurrence: None)
  Receive Date: 20100304
  Receipt Date: 20100224
  Transmission Date: 20100710
  Serious: Yes (Other)
  Sender: FDA-Public Use
  Company Number: US-PFIZER INC-2010024278

PATIENT
  Sex: Female
  Weight: 99.8 kg

DRUGS (6)
  1. LIPITOR [Suspect]
     Indication: BLOOD CHOLESTEROL INCREASED
     Dosage: 20 MG, 1X/DAY
     Route: 048
  2. CALCIUM WITH VITAMIN D [Concomitant]
     Dosage: UNK
  3. DYAZIDE [Concomitant]
     Indication: DIURETIC THERAPY
     Dosage: UNK
  4. TENORMIN [Concomitant]
     Indication: FLUID RETENTION
     Dosage: 50 MG, 1X/DAY
     Route: 048
  5. ACETYLSALICYLIC ACID [Concomitant]
     Indication: CEREBROVASCULAR ACCIDENT
     Dosage: UNK MG, UNK
     Route: 048
  6. MULTI-VITAMINS [Concomitant]
     Dosage: UNK

REACTIONS (4)
  - BLOOD GLUCOSE DECREASED [None]
  - BLOOD PRESSURE INCREASED [None]
  - BLOOD TRIGLYCERIDES INCREASED [None]
  - POLYMYALGIA RHEUMATICA [None]
